FAERS Safety Report 22918562 (Version 9)
Quarter: 2024Q3

REPORT INFORMATION
  Report Type: Spontaneous
  Country: US (occurrence: US)
  Receive Date: 20230907
  Receipt Date: 20240916
  Transmission Date: 20241017
  Serious: Yes (Other)
  Sender: PFIZER
  Company Number: US-PFIZER INC-PV202300066722

PATIENT
  Age: 18 Year
  Sex: Male
  Weight: 68.027 kg

DRUGS (4)
  1. BENEFIX [Suspect]
     Active Substance: COAGULATION FACTOR IX RECOMBINANT HUMAN\ISOPROPYL ALCOHOL
     Indication: Haemorrhage
     Dosage: 6800 IU (+/-10%) = 100 IU / KG X 1 DAILY ON DEMAND FOR A BLEED
  2. BENEFIX [Suspect]
     Active Substance: COAGULATION FACTOR IX RECOMBINANT HUMAN\ISOPROPYL ALCOHOL
     Dosage: 7300 IU (+/-10%) = 100 IU / KG X 1 DAILY ON DEMAND FOR A BLEED
  3. BENEFIX [Suspect]
     Active Substance: COAGULATION FACTOR IX RECOMBINANT HUMAN\ISOPROPYL ALCOHOL
     Dosage: INFUSE BENEFIX 6800 UNITS (+5% ) = 100 UNITS/KG DAILY ON DEMAND FOR A BLEED
  4. BENEFIX [Suspect]
     Active Substance: COAGULATION FACTOR IX RECOMBINANT HUMAN\ISOPROPYL ALCOHOL
     Dosage: 6800 IU (QTY. 5 DOSES)

REACTIONS (2)
  - Haemarthrosis [Not Recovered/Not Resolved]
  - Contusion [Unknown]
